FAERS Safety Report 5801394-2 (Version None)
Quarter: 2008Q3

REPORT INFORMATION
  Report Type: 
  Country: None (occurrence: None)
  Receive Date: 20080703
  Receipt Date: 20080703
  Transmission Date: 20090109
  Serious: No
  Sender: FDA-Public Use
  Company Number: None

PATIENT
  Age: 36 Year
  Sex: Male

DRUGS (1)
  1. VARENICLINE,  1MG [Suspect]
     Indication: SMOKING CESSATION THERAPY
     Dosage: 1MG BID PO
     Route: 048
     Dates: start: 20071206, end: 20080613

REACTIONS (2)
  - ANGER [None]
  - IRRITABILITY [None]
